FAERS Safety Report 9629584 (Version 2)
Quarter: 2013Q4

REPORT INFORMATION
  Report Type: Spontaneous
  Country: KR (occurrence: KR)
  Receive Date: 20131017
  Receipt Date: 20131122
  Transmission Date: 20140711
  Serious: Yes (Death)
  Sender: FDA-Public Use
  Company Number: KR-SA-2013SA102111

PATIENT
  Sex: 0

DRUGS (4)
  1. ELOXATIN [Suspect]
     Indication: PRODUCT USED FOR UNKNOWN INDICATION
     Dosage: 50MG?DOSE ADMINISTERED: 144.5MG 5DW 500ML
     Route: 042
     Dates: start: 20131009, end: 20131009
  2. ELOXATIN [Suspect]
     Indication: PRODUCT USED FOR UNKNOWN INDICATION
     Dosage: 100MG?DOSE ADMINISTERED: 144.5MG 5DW 500ML
     Route: 042
     Dates: start: 20131009, end: 20131009
  3. ELOXATIN [Suspect]
     Indication: PRODUCT USED FOR UNKNOWN INDICATION
     Dosage: 100MG
     Route: 042
  4. DEXAMETHASONE [Concomitant]

REACTIONS (1)
  - Cardiac arrest [Fatal]
